FAERS Safety Report 6044352-8 (Version None)
Quarter: 2009Q1

REPORT INFORMATION
  Report Type: 
  Country: None (occurrence: None)
  Receive Date: 20090120
  Receipt Date: 20090109
  Transmission Date: 20090719
  Serious: Yes (Death, Life-Threatening, Other)
  Sender: FDA-Public Use
  Company Number: GB-JNJFOC-20081001452

PATIENT
  Sex: Male
  Weight: 69 kg

DRUGS (22)
  1. REMICADE [Suspect]
     Route: 042
  2. REMICADE [Suspect]
     Indication: RHEUMATOID ARTHRITIS
     Route: 042
  3. ATORVASTATIN CALCIUM [Concomitant]
  4. CALCICHEW [Concomitant]
  5. CLOPIDOGREL [Concomitant]
  6. FRUSEMIDE [Concomitant]
  7. GTN SPRAY [Concomitant]
  8. INSULIN [Concomitant]
  9. LANSOPRAZOLE [Concomitant]
  10. ACETAMINOPHEN [Concomitant]
  11. RISEDRONATE SODIUM [Concomitant]
  12. TRAMADOL HCL [Concomitant]
  13. LEFLUNOMIDE [Concomitant]
  14. SIMVASTATIN [Concomitant]
  15. BISOPROLOL [Concomitant]
  16. ISOSORBIDE MONONITRATE [Concomitant]
  17. OMEPRAZOLE [Concomitant]
  18. DOCUSATE [Concomitant]
  19. COLECALCIFEROL [Concomitant]
  20. NICORANDIL [Concomitant]
  21. CARBAMAZEPINE [Concomitant]
  22. MIXTARD HUMAN 70/30 [Concomitant]

REACTIONS (3)
  - ARTERIOSCLEROSIS CORONARY ARTERY [None]
  - CORONARY ARTERY STENOSIS [None]
  - MYOCARDIAL INFARCTION [None]
